FAERS Safety Report 10187679 (Version 1)
Quarter: 2014Q2

REPORT INFORMATION
  Report Type: Spontaneous
  Country: US (occurrence: US)
  Receive Date: 20140522
  Receipt Date: 20140522
  Transmission Date: 20141212
  Serious: No
  Sender: FDA-Public Use
  Company Number: US-SANOFI-AVENTIS-2013SA088618

PATIENT
  Age: 54 Year
  Sex: Male

DRUGS (2)
  1. LANTUS SOLOSTAR [Suspect]
     Indication: TYPE 2 DIABETES MELLITUS
     Dosage: START DATE -- 2005 -2006?DOSE -- 22 - 25 UNITS DOSE:22 UNIT(S)
     Route: 051
     Dates: start: 2005
  2. SOLOSTAR [Concomitant]

REACTIONS (4)
  - Nerve compression [Unknown]
  - Pain [Unknown]
  - Blood glucose increased [Unknown]
  - Incorrect dose administered [Unknown]
